FAERS Safety Report 18077228 (Version 2)
Quarter: 2020Q4

REPORT INFORMATION
  Report Type: Report from Study
  Country: US (occurrence: US)
  Receive Date: 20200728
  Receipt Date: 20201012
  Transmission Date: 20210113
  Serious: No
  Sender: FDA-Public Use
  Company Number: NVSC2020US210300

PATIENT
  Sex: Female
  Weight: 52.16 kg

DRUGS (4)
  1. TREPROSTINIL. [Suspect]
     Active Substance: TREPROSTINIL
     Indication: PULMONARY ARTERIAL HYPERTENSION
     Dosage: UNK
     Route: 042
  2. ADCIRCA [Concomitant]
     Active Substance: TADALAFIL
     Indication: PULMONARY ARTERIAL HYPERTENSION
     Dosage: UNK
     Route: 065
  3. AMBRISENTAN [Concomitant]
     Active Substance: AMBRISENTAN
     Indication: PULMONARY ARTERIAL HYPERTENSION
     Dosage: UNK
     Route: 065
  4. TREPROSTINIL. [Suspect]
     Active Substance: TREPROSTINIL
     Dosage: UNK (49 NG/KG/MIN, CONTINUOUS)
     Route: 065
     Dates: start: 20200403

REACTIONS (4)
  - Amnesia [Unknown]
  - Pain in extremity [Unknown]
  - Illness [Unknown]
  - Feeling abnormal [Unknown]
